FAERS Safety Report 16074693 (Version 1)
Quarter: 2019Q1

REPORT INFORMATION
  Report Type: Spontaneous
  Country: US (occurrence: US)
  Receive Date: 20190314
  Receipt Date: 20190314
  Transmission Date: 20190418
  Serious: Yes (Other)
  Sender: FDA-Public Use
  Company Number: US-009507513-1903USA005660

PATIENT
  Age: 77 Year
  Sex: Female

DRUGS (2)
  1. CMP-001 [Concomitant]
  2. KEYTRUDA [Suspect]
     Active Substance: PEMBROLIZUMAB
     Indication: METASTATIC MALIGNANT MELANOMA

REACTIONS (2)
  - Treatment failure [Recovered/Resolved]
  - Malignant neoplasm progression [Recovered/Resolved]
